FAERS Safety Report 7148062-5 (Version None)
Quarter: 2010Q4

REPORT INFORMATION
  Report Type: 
  Country: None (occurrence: None)
  Receive Date: 20101209
  Receipt Date: 20101126
  Transmission Date: 20110411
  Serious: Yes (Other)
  Sender: FDA-Public Use
  Company Number: SE-ELI_LILLY_AND_COMPANY-SE201011007466

PATIENT
  Sex: Female

DRUGS (8)
  1. CYMBALTA [Suspect]
     Indication: MAJOR DEPRESSION
     Dosage: 30 MG, UNKNOWN
     Dates: start: 20101101, end: 20101116
  2. CYMBALTA [Suspect]
     Dosage: 60 MG, UNK
     Dates: start: 20101116
  3. FELODIPINE [Concomitant]
  4. PREDNISOLONE [Concomitant]
  5. LEVOTHYROXINE SODIUM [Concomitant]
  6. ZOPIKLON [Concomitant]
  7. NEXIUM [Concomitant]
  8. MOVICOL [Concomitant]

REACTIONS (1)
  - PULMONARY EMBOLISM [None]
